FAERS Safety Report 10069951 (Version 2)
Quarter: 2014Q2

REPORT INFORMATION
  Report Type: Report from Study
  Country: HU (occurrence: HU)
  Receive Date: 20140410
  Receipt Date: 20140630
  Transmission Date: 20141212
  Serious: Yes (Hospitalization)
  Sender: FDA-Public Use
  Company Number: HU-ASTRAZENECA-2014SE22088

PATIENT
  Age: 60 Year
  Sex: Male

DRUGS (2)
  1. SYMBICORT TURBUHALER [Suspect]
     Indication: CHRONIC OBSTRUCTIVE PULMONARY DISEASE
     Dosage: 4.5/160 MCG/DOSE TWO TIMES A DAY
     Route: 055
     Dates: start: 20140303, end: 20140405
  2. SYMBICORT TURBUHALER [Suspect]
     Indication: CHRONIC OBSTRUCTIVE PULMONARY DISEASE
     Dosage: ONCE DAILY
     Route: 055
     Dates: start: 20140322

REACTIONS (2)
  - Dyspnoea [Unknown]
  - Intentional product misuse [Unknown]
